FAERS Safety Report 10710307 (Version 1)
Quarter: 2015Q1

REPORT INFORMATION
  Report Type: Spontaneous
  Country: IT (occurrence: IT)
  Receive Date: 20150114
  Receipt Date: 20150114
  Transmission Date: 20150721
  Serious: Yes (Other)
  Sender: FDA-Public Use
  Company Number: IT-SA-2015SA003446

PATIENT
  Age: 48 Year
  Sex: Female

DRUGS (1)
  1. FERLIXIT [Suspect]
     Active Substance: SODIUM FERRIC GLUCONATE COMPLEX
     Indication: IRON DEFICIENCY ANAEMIA
     Route: 065
     Dates: start: 20141202, end: 20141202

REACTIONS (1)
  - Laryngeal stenosis [Recovered/Resolved]

NARRATIVE: CASE EVENT DATE: 20141202
